FAERS Safety Report 10298192 (Version 1)
Quarter: 2014Q3

REPORT INFORMATION
  Report Type: Spontaneous
  Country: US (occurrence: US)
  Receive Date: 20140711
  Receipt Date: 20140711
  Transmission Date: 20150326
  Serious: Yes (Hospitalization)
  Sender: FDA-Public Use
  Company Number: US-GLAXOSMITHKLINE-A1057084A

PATIENT
  Age: 55 Year
  Sex: Female

DRUGS (2)
  1. NO CONCURRENT MEDICATION [Concomitant]
     Active Substance: UNSPECIFIED INGREDIENT
  2. FLOVENT [Suspect]
     Active Substance: FLUTICASONE PROPIONATE
     Indication: ASTHMA
     Route: 055

REACTIONS (1)
  - Asthma [Recovering/Resolving]

NARRATIVE: CASE EVENT DATE: 20140113
